FAERS Safety Report 19423932 (Version 1)
Quarter: 2021Q2

REPORT INFORMATION
  Report Type: Spontaneous
  Country: US (occurrence: US)
  Receive Date: 20210616
  Receipt Date: 20210616
  Transmission Date: 20210717
  Serious: Yes (Hospitalization)
  Sender: FDA-Public Use
  Company Number: US-MYLANLABS-2021M1034734

PATIENT
  Age: 51 Year
  Sex: Male

DRUGS (5)
  1. OXALIPLATIN. [Concomitant]
     Active Substance: OXALIPLATIN
     Indication: ADENOCARCINOMA METASTATIC
     Dosage: UNK
     Route: 065
  2. FLUOROURACIL. [Suspect]
     Active Substance: FLUOROURACIL
     Indication: ADENOCARCINOMA METASTATIC
     Dosage: CONTINUOUS INFUSION
     Route: 041
  3. BEVACIZUMAB. [Concomitant]
     Active Substance: BEVACIZUMAB
     Indication: ADENOCARCINOMA METASTATIC
     Dosage: UNK
     Route: 065
  4. FOLINIC ACID [Concomitant]
     Active Substance: LEUCOVORIN
     Indication: ADENOCARCINOMA METASTATIC
     Dosage: UNK
     Route: 065
  5. IRINOTECAN [Concomitant]
     Active Substance: IRINOTECAN
     Indication: ADENOCARCINOMA METASTATIC
     Dosage: UNK
     Route: 065

REACTIONS (3)
  - Angiopathy [Recovered/Resolved]
  - Cerebral vasoconstriction [Recovering/Resolving]
  - Neurotoxicity [Recovered/Resolved]
